FAERS Safety Report 4768789-X (Version None)
Quarter: 2005Q3

REPORT INFORMATION
  Report Type: 
  Country: None (occurrence: None)
  Receive Date: 20050914
  Receipt Date: 20050721
  Transmission Date: 20060218
  Serious: Yes (Hospitalization)
  Sender: FDA-Public Use
  Company Number: JP-BRISTOL-MYERS SQUIBB COMPANY-13079496

PATIENT
  Age: 79 Year
  Sex: Male

DRUGS (10)
  1. SINEMET [Suspect]
     Indication: PARKINSON'S DISEASE
     Route: 048
  2. DEPAS [Concomitant]
     Dates: start: 20050101
  3. GRAMALIL [Concomitant]
     Dates: start: 20040101
  4. PARLODEL [Concomitant]
     Dates: start: 20040401
  5. PLETAL [Concomitant]
     Dates: start: 20050201
  6. PURSENNID [Concomitant]
  7. SIGMART [Concomitant]
  8. SYMMETREL [Concomitant]
  9. ZANTAC [Concomitant]
  10. MAGNESIUM OXIDE [Concomitant]
     Dates: start: 20040101

REACTIONS (2)
  - ILEUS [None]
  - ORAL MUCOSAL DISCOLOURATION [None]
